FAERS Safety Report 7585377-0 (Version None)
Quarter: 2011Q3

REPORT INFORMATION
  Report Type: 
  Country: None (occurrence: None)
  Receive Date: 20110701
  Receipt Date: 20091122
  Transmission Date: 20111222
  Serious: Yes (Death, Other)
  Sender: FDA-Public Use
  Company Number: US-BAYER-200939841NA

PATIENT
  Age: 80 Year
  Sex: Female
  Weight: 64.036 kg

DRUGS (17)
  1. TRASYLOL [Suspect]
     Indication: PRODUCT USED FOR UNKNOWN INDICATION
     Dosage: 1 ML, INITIAL DOSE
     Route: 042
     Dates: start: 20040109, end: 20040109
  2. PROTAMINE SULFATE [Concomitant]
     Dosage: 250 MG, UNK
  3. LIPITOR [Concomitant]
     Dosage: 10 MG, UNK
     Route: 048
  4. INSULIN [Concomitant]
  5. TRASYLOL [Suspect]
     Dosage: 200 ML CARDIOPULMONARY BYPASS PRIME
     Route: 042
     Dates: start: 20040109, end: 20040109
  6. PHENYLEPHRINE HCL [Concomitant]
     Dosage: 1.5 MG, UNK
  7. HEPARIN [Concomitant]
     Route: 042
  8. HEPARIN [Concomitant]
     Dosage: 63000 U, UNK
     Route: 042
  9. PLAVIX [Concomitant]
     Dosage: 75 MG, UNK
     Route: 048
  10. ACETYLSALICYLIC ACID SRT [Concomitant]
     Dosage: 81 MG, QD
     Route: 048
  11. TOPROL-XL [Concomitant]
     Dosage: 50 MG, UNK
     Route: 048
  12. DOBUTAMINE HCL [Concomitant]
  13. FRESH FROZEN PLASMA [Concomitant]
     Dosage: 2 U, UNK
     Route: 042
     Dates: start: 20040109
  14. ARANESP [Concomitant]
     Dosage: 60 ?G, EVERY WEEK
  15. CEFUROXIME [Concomitant]
     Dosage: 3 G, UNK
     Route: 042
  16. PLATELETS [Concomitant]
     Dosage: 6 U, UNK
     Route: 042
     Dates: start: 20040109
  17. PACKED RED BLOOD CELLS [Concomitant]
     Dosage: 4 U, UNK
     Route: 042
     Dates: start: 20040109

REACTIONS (15)
  - CARDIOGENIC SHOCK [None]
  - RENAL IMPAIRMENT [None]
  - STRESS [None]
  - MULTI-ORGAN FAILURE [None]
  - UNEVALUABLE EVENT [None]
  - RENAL INJURY [None]
  - EMOTIONAL DISTRESS [None]
  - FEAR [None]
  - PAIN [None]
  - INJURY [None]
  - RENAL FAILURE [None]
  - ANHEDONIA [None]
  - DEATH [None]
  - ANXIETY [None]
  - PSYCHIATRIC SYMPTOM [None]
